FAERS Safety Report 14634219 (Version 1)
Quarter: 2018Q1

REPORT INFORMATION
  Report Type: Spontaneous
  Country: DE (occurrence: DE)
  Receive Date: 20180314
  Receipt Date: 20180314
  Transmission Date: 20180509
  Serious: Yes (Hospitalization)
  Sender: FDA-Public Use
  Company Number: DE-CIPLA LTD.-2018DE10902

PATIENT

DRUGS (1)
  1. LEVETIRACETAM. [Suspect]
     Active Substance: LEVETIRACETAM
     Indication: EPILEPSY
     Dosage: DAILY DOSE: 80 MG MILLIGRAM(S) EVERY DAY
     Route: 048
     Dates: end: 20171009

REACTIONS (5)
  - Blood bilirubin increased [Recovering/Resolving]
  - Off label use [Unknown]
  - Hepatic function abnormal [Unknown]
  - Hepatic enzyme increased [Recovering/Resolving]
  - Ammonia increased [Unknown]

NARRATIVE: CASE EVENT DATE: 20101009
